FAERS Safety Report 10740136 (Version 1)
Quarter: 2015Q1

REPORT INFORMATION
  Report Type: Spontaneous
  Country: US (occurrence: US)
  Receive Date: 20150127
  Receipt Date: 20150127
  Transmission Date: 20150721
  Serious: No
  Sender: FDA-Public Use
  Company Number: US-TEVA-486151USA

PATIENT
  Sex: Female

DRUGS (4)
  1. METFORMIN [Suspect]
     Active Substance: METFORMIN HYDROCHLORIDE
     Dates: start: 201111, end: 20140517
  2. COZAAR [Concomitant]
     Active Substance: LOSARTAN POTASSIUM
  3. ZOCOR [Concomitant]
     Active Substance: SIMVASTATIN
  4. LEVOTHYROXINE [Concomitant]
     Active Substance: LEVOTHYROXINE

REACTIONS (1)
  - Skin odour abnormal [Recovered/Resolved]

NARRATIVE: CASE EVENT DATE: 201401
